FAERS Safety Report 8837748 (Version 3)
Quarter: 2013Q1

REPORT INFORMATION
  Report Type: Report from Study
  Country: JP (occurrence: JP)
  Receive Date: 20121012
  Receipt Date: 20130102
  Transmission Date: 20140127
  Serious: Yes (Death, Hospitalization)
  Sender: FDA-Public Use
  Company Number: PHHY2012JP089361

PATIENT
  Age: 81 Year
  Sex: Male

DRUGS (15)
  1. ICL670A [Suspect]
     Indication: APLASTIC ANAEMIA
     Dosage: 1000 MG, DAILY
     Route: 048
     Dates: start: 20091223, end: 20100629
  2. ICL670A [Suspect]
     Dosage: 500 MG, DAILY
     Route: 048
     Dates: start: 20100630, end: 20100726
  3. NEORAL [Suspect]
     Indication: APLASTIC ANAEMIA
     Dosage: 200 MG, DAILY
     Route: 048
     Dates: start: 20090902, end: 20100627
  4. NEORAL [Suspect]
     Dosage: 100 MG, DAILY
     Route: 048
     Dates: start: 20100630, end: 20100813
  5. GRAN [Suspect]
     Indication: APLASTIC ANAEMIA
     Dosage: 75 UG, DAILY
     Route: 048
     Dates: start: 20090902, end: 20100629
  6. GRAN [Suspect]
     Dosage: 150 UG, DAILY
     Route: 048
     Dates: start: 20100630, end: 20100813
  7. PARIET [Concomitant]
     Dosage: 10 MG, UNK
     Route: 048
     Dates: start: 20091110, end: 20100813
  8. GASMOTIN [Concomitant]
     Dosage: 15 MG, UNK
     Route: 048
     Dates: start: 20091110, end: 20100813
  9. NEUROTROPIN [Concomitant]
     Dosage: 4 DF, UNK
     Route: 048
     Dates: start: 20091110, end: 20100629
  10. RED BLOOD CELLS, LEUCOCYTE DEPLETED [Concomitant]
     Dosage: 2 U, EVERY 0.5 TO 1 WEEKS
     Dates: start: 20091225
  11. RED BLOOD CELLS, LEUCOCYTE DEPLETED [Concomitant]
     Dosage: 4 U, EVERY 0.5 TO 1 WEEKS
     Dates: end: 20100618
  12. ISCOTIN [Concomitant]
     Indication: PROPHYLAXIS
     Dosage: 200 MG, UNK
     Route: 048
     Dates: start: 20091110, end: 20100629
  13. SPIRIVA [Concomitant]
     Dosage: 18 UG, UNK
     Dates: start: 20091110, end: 20100813
  14. LUPRAC [Concomitant]
     Dosage: 8 MG, UNK
     Route: 048
     Dates: start: 20091125
  15. LUPRAC [Concomitant]
     Dosage: 8 MG, UNK
     Route: 048
     Dates: end: 20100813

REACTIONS (8)
  - Aplastic anaemia [Fatal]
  - Acute sinusitis [Not Recovered/Not Resolved]
  - C-reactive protein increased [Unknown]
  - Blood alkaline phosphatase increased [Not Recovered/Not Resolved]
  - Renal disorder [Recovered/Resolved]
  - Nausea [Recovered/Resolved]
  - Blood creatinine increased [Recovered/Resolved]
  - Blood urea increased [Recovered/Resolved]
